FAERS Safety Report 8265633 (Version 2)
Quarter: 2012Q4

REPORT INFORMATION
  Report Type: Report from Study
  Country: US (occurrence: US)
  Receive Date: 20111128
  Receipt Date: 20121022
  Transmission Date: 20130627
  Serious: Yes (Death, Hospitalization, Other)
  Sender: FDA-Public Use
  Company Number: US-ROCHE-795287

PATIENT
  Age: 68 Year
  Sex: Male
  Weight: 60.38 kg

DRUGS (8)
  1. CAPECITABINE [Suspect]
     Indication: COLORECTAL CANCER METASTATIC
     Route: 048
     Dates: start: 20110128, end: 20111004
  2. TEMOZOLOMIDE [Suspect]
     Indication: PRODUCT USED FOR UNKNOWN INDICATION
     Route: 048
     Dates: start: 20110131, end: 20110530
  3. INSULIN [Concomitant]
  4. ALDACTONE [Concomitant]
     Indication: ASCITES
     Route: 048
  5. MEGACE [Concomitant]
     Route: 048
  6. FERROUS SULFATE [Concomitant]
     Indication: ANAEMIA
     Route: 048
  7. MORPHINE [Concomitant]
     Indication: PAIN
     Route: 048
  8. COLACE [Concomitant]
     Indication: CONSTIPATION
     Route: 048

REACTIONS (6)
  - Disease progression [Fatal]
  - Dehydration [Unknown]
  - Disorientation [Unknown]
  - Hepatic encephalopathy [Recovering/Resolving]
  - Mental status changes [Recovering/Resolving]
  - Renal failure acute [Recovering/Resolving]
